FAERS Safety Report 7643611-2 (Version None)
Quarter: 2011Q3

REPORT INFORMATION
  Report Type: 
  Country: None (occurrence: None)
  Receive Date: 20110729
  Receipt Date: 20110718
  Transmission Date: 20111222
  Serious: Yes (Hospitalization, Other)
  Sender: FDA-Public Use
  Company Number: PHHY2011ES65373

PATIENT
  Age: 77 Year
  Sex: Female

DRUGS (5)
  1. CARBAMAZEPINE [Suspect]
     Indication: EPILEPSY
     Dosage: 200 MG, PER 12 HR
     Route: 048
  2. OMEPRAZOLE [Concomitant]
     Dosage: 20 MG, PER DAY
  3. GLYBURIDE [Concomitant]
     Dosage: 5 MG PER DAY
  4. TRAZODONE HCL [Interacting]
     Indication: DEPRESSIVE SYMPTOM
     Dosage: 100 MG, PER DAY
  5. AMIODARONE HCL [Concomitant]
     Dosage: 200 MG, PER DAY

REACTIONS (14)
  - HYPOTONIA [None]
  - DEPRESSIVE SYMPTOM [None]
  - PSYCHOMOTOR RETARDATION [None]
  - DEPRESSION [None]
  - ATAXIA [None]
  - DECREASED APPETITE [None]
  - GAIT DISTURBANCE [None]
  - INSOMNIA [None]
  - DELUSION [None]
  - ESSENTIAL TREMOR [None]
  - ANTICONVULSANT DRUG LEVEL INCREASED [None]
  - IRRITABILITY [None]
  - TOXICITY TO VARIOUS AGENTS [None]
  - DRUG INTERACTION [None]
